FAERS Safety Report 5479666-3 (Version None)
Quarter: 2007Q4

REPORT INFORMATION
  Report Type: 
  Country: None (occurrence: None)
  Receive Date: 20071008
  Receipt Date: 20071003
  Transmission Date: 20080405
  Serious: Yes (Hospitalization)
  Sender: FDA-Public Use
  Company Number: B0489078A

PATIENT
  Age: 51 Year
  Sex: Female

DRUGS (3)
  1. ARIXTRA [Suspect]
     Indication: VENOUS THROMBOSIS
     Route: 058
     Dates: start: 20070913, end: 20070915
  2. INNOHEP [Suspect]
     Indication: VENOUS THROMBOSIS
     Route: 058
     Dates: start: 20070906, end: 20070912
  3. PREVISCAN [Concomitant]
     Indication: DEEP VEIN THROMBOSIS
     Dosage: 10MG PER DAY
     Route: 048
     Dates: start: 20070916, end: 20070916

REACTIONS (7)
  - CONDITION AGGRAVATED [None]
  - INJECTION SITE INDURATION [None]
  - INJECTION SITE OEDEMA [None]
  - INJECTION SITE RASH [None]
  - PRURITUS [None]
  - RASH GENERALISED [None]
  - URTICARIA PAPULAR [None]
